FAERS Safety Report 9552795 (Version 1)
Quarter: 2013Q3

REPORT INFORMATION
  Report Type: Spontaneous
  Country: US (occurrence: None)
  Receive Date: 20130724
  Receipt Date: 20130724
  Transmission Date: 20140515
  Serious: Yes (Hospitalization, Other)
  Sender: FDA-Public Use
  Company Number: PHEH2012US019845

PATIENT
  Age: 61 Year
  Sex: Female

DRUGS (1)
  1. GLEEVEC [Suspect]
     Indication: CHRONIC LYMPHOCYTIC LEUKAEMIA
     Dosage: 400 MG, DAILY, ORAL
     Route: 048
     Dates: start: 20120422

REACTIONS (6)
  - Arrhythmia [None]
  - Malaise [None]
  - Hypersensitivity [None]
  - Haemorrhage [None]
  - Nausea [None]
  - Dizziness [None]
